FAERS Safety Report 7162685-9 (Version None)
Quarter: 2010Q4

REPORT INFORMATION
  Report Type: 
  Country: None (occurrence: None)
  Receive Date: 20101215
  Receipt Date: 20091209
  Transmission Date: 20110411
  Serious: Yes (Other)
  Sender: FDA-Public Use
  Company Number: JP-PFIZER INC-2009309290

PATIENT
  Age: 51 Year

DRUGS (7)
  1. SUNITINIB MALATE [Suspect]
     Indication: METASTATIC RENAL CELL CARCINOMA
     Dosage: 37.5 MG, 1X/DAY
     Route: 048
     Dates: start: 20090429, end: 20090828
  2. LENDORMIN [Concomitant]
     Dosage: UNK
     Route: 048
  3. GASTER [Concomitant]
     Dosage: UNK
     Route: 048
     Dates: start: 20090511
  4. KENALOG IN ORABASE [Concomitant]
     Dosage: UNK
     Route: 062
     Dates: start: 20090510
  5. UREPEARL [Concomitant]
     Dosage: UNK
     Route: 062
     Dates: start: 20090429
  6. AZUNOL [Concomitant]
     Dosage: UNK
     Route: 048
     Dates: start: 20090623
  7. ANTEBATE [Concomitant]
     Dosage: UNK
     Route: 062
     Dates: start: 20090702

REACTIONS (1)
  - INTERSTITIAL LUNG DISEASE [None]
